FAERS Safety Report 9139747 (Version 1)
Quarter: 2013Q1

REPORT INFORMATION
  Report Type: Spontaneous
  Country: US (occurrence: US)
  Receive Date: 20130305
  Receipt Date: 20130305
  Transmission Date: 20140127
  Serious: No
  Sender: FDA-Public Use
  Company Number: US-ENDO PHARMACEUTICALS INC.-SPLN20110066

PATIENT
  Sex: Male

DRUGS (2)
  1. SUPPRELIN LA [Suspect]
     Indication: PRECOCIOUS PUBERTY
     Route: 058
     Dates: start: 2008
  2. LEVOTHYROXINE [Concomitant]
     Indication: HYPOTHYROIDISM
     Dosage: UNK
     Route: 048

REACTIONS (5)
  - Insomnia [Not Recovered/Not Resolved]
  - Nervousness [Not Recovered/Not Resolved]
  - Irritability [Not Recovered/Not Resolved]
  - Mood swings [Not Recovered/Not Resolved]
  - Headache [Not Recovered/Not Resolved]
